FAERS Safety Report 15987374 (Version 1)
Quarter: 2019Q1

REPORT INFORMATION
  Report Type: Spontaneous
  Country: CA (occurrence: CA)
  Receive Date: 20190220
  Receipt Date: 20190220
  Transmission Date: 20190418
  Serious: Yes (Life-Threatening)
  Sender: FDA-Public Use
  Company Number: CA-PFIZER INC-2019070005

PATIENT
  Sex: Female

DRUGS (1)
  1. CARBOPLATIN. [Suspect]
     Active Substance: CARBOPLATIN
     Dosage: 577 MG, UNK
     Route: 041

REACTIONS (5)
  - Erythema [Unknown]
  - Vomiting [Unknown]
  - Dyspnoea [Unknown]
  - Nausea [Unknown]
  - Nasal congestion [Unknown]
